FAERS Safety Report 7978144-7 (Version None)
Quarter: 2011Q4

REPORT INFORMATION
  Report Type: 
  Country: None (occurrence: None)
  Receive Date: 20111202
  Receipt Date: 20111125
  Transmission Date: 20120403
  Serious: Yes (Other)
  Sender: FDA-Public Use
  Company Number: 2011SP020383

PATIENT
  Age: 31 Year
  Sex: Female
  Weight: 68 kg

DRUGS (2)
  1. NUVARING [Suspect]
     Indication: CONTRACEPTION
     Dates: start: 20100901, end: 20110118
  2. AMOXICILLIN TRIHYDRATE [Concomitant]

REACTIONS (7)
  - BRONCHITIS [None]
  - GESTATIONAL DIABETES [None]
  - VAGINAL INFECTION [None]
  - FUNGAL INFECTION [None]
  - INFLUENZA [None]
  - VULVOVAGINAL MYCOTIC INFECTION [None]
  - PREGNANCY WITH CONTRACEPTIVE DEVICE [None]
